FAERS Safety Report 4586001-1 (Version None)
Quarter: 2005Q1

REPORT INFORMATION
  Report Type: 
  Country: None (occurrence: None)
  Receive Date: 20050125
  Receipt Date: 20040914
  Transmission Date: 20050727
  Serious: No
  Sender: FDA-Public Use
  Company Number: USA040669306

PATIENT
  Age: 63 Year
  Sex: Female
  Weight: 50 kg

DRUGS (5)
  1. FORTEO [Suspect]
     Indication: FRACTURE
     Dosage: 20 UG DAY
     Dates: start: 20040509
  2. CALCIUM CARBONATE + VITAMIN D [Concomitant]
  3. ASPIRIN [Concomitant]
  4. MULTI-VITAMIN [Concomitant]
  5. VITAMIN E [Concomitant]

REACTIONS (5)
  - CHROMATURIA [None]
  - DYSGEUSIA [None]
  - EMOTIONAL DISTRESS [None]
  - THIRST [None]
  - URINE ABNORMALITY [None]
